FAERS Safety Report 6346983-4 (Version None)
Quarter: 2009Q3

REPORT INFORMATION
  Report Type: 
  Country: None (occurrence: None)
  Receive Date: 20090908
  Receipt Date: 20090908
  Transmission Date: 20100115
  Serious: Yes (Other)
  Sender: FDA-Public Use
  Company Number: None

PATIENT
  Age: 53 Year
  Sex: Female
  Weight: 99.7913 kg

DRUGS (1)
  1. ZICAM NASAL SWABS ZICAM [Suspect]
     Indication: VIRAL INFECTION
     Dosage: USE 1 SWAB EVERY 4 HOURS INHAL
     Route: 055
     Dates: start: 20070215, end: 20070301

REACTIONS (3)
  - AGEUSIA [None]
  - DYSGEUSIA [None]
  - HYPOSMIA [None]
